FAERS Safety Report 4995727-7 (Version None)
Quarter: 2006Q2

REPORT INFORMATION
  Report Type: 
  Country: None (occurrence: None)
  Receive Date: 20060508
  Receipt Date: 20060123
  Transmission Date: 20061013
  Serious: Yes (Other)
  Sender: FDA-Public Use
  Company Number: US-AVENTIS-200610820US

PATIENT
  Sex: Female

DRUGS (11)
  1. LANTUS [Suspect]
     Indication: DIABETES MELLITUS INSULIN-DEPENDENT
     Dosage: DOSE: UNKNOWN
     Dates: start: 20030101
  2. OPTICLIK (INSULIN INJECTION PEN) [Suspect]
     Indication: DIABETES MELLITUS INSULIN-DEPENDENT
  3. ATENOLOL [Concomitant]
  4. EVISTA [Concomitant]
  5. HYDROCHLOROTHIAZIDE [Concomitant]
  6. SYNTHROID [Concomitant]
  7. ENALAPRIL MALEATE [Concomitant]
  8. ZOCOR [Concomitant]
  9. LORAZEPAM [Concomitant]
  10. ASPIRIN [Concomitant]
  11. NOVOLOG [Concomitant]
     Dosage: DOSE: UNKNOWN

REACTIONS (4)
  - DIABETIC HYPERGLYCAEMIC COMA [None]
  - FALL [None]
  - HYPERGLYCAEMIA [None]
  - LOWER LIMB FRACTURE [None]
